FAERS Safety Report 25624349 (Version 3)
Quarter: 2025Q4

REPORT INFORMATION
  Report Type: Spontaneous
  Country: JP (occurrence: JP)
  Receive Date: 20250730
  Receipt Date: 20251105
  Transmission Date: 20260118
  Serious: Yes (Other)
  Sender: MERCK SHARP & DOHME LLC
  Company Number: JP-009507513-2314616

PATIENT
  Age: 82 Year
  Sex: Female

DRUGS (1)
  1. KEYTRUDA [Suspect]
     Active Substance: PEMBROLIZUMAB
     Indication: Bladder cancer recurrent
     Dosage: 200 MG EVERY 3 WEEKS
     Route: 041
     Dates: start: 20250401, end: 2025

REACTIONS (3)
  - Primary biliary cholangitis [Unknown]
  - Cholangitis sclerosing [Unknown]
  - Hepatic function abnormal [Unknown]

NARRATIVE: CASE EVENT DATE: 20250101
